FAERS Safety Report 25195421 (Version 3)
Quarter: 2025Q3

REPORT INFORMATION
  Report Type: Spontaneous
  Country: US (occurrence: US)
  Receive Date: 20250415
  Receipt Date: 20250728
  Transmission Date: 20251020
  Serious: No
  Sender: SANOFI AVENTIS
  Company Number: US-SA-2025SA104210

PATIENT
  Sex: Female
  Weight: 63.64 kg

DRUGS (3)
  1. DUPIXENT [Suspect]
     Active Substance: DUPILUMAB
     Indication: Eosinophilic oesophagitis
     Dosage: 300 MG, QW
     Route: 058
  2. DUPIXENT [Suspect]
     Active Substance: DUPILUMAB
     Indication: Asthma
  3. AVSOLA [Concomitant]
     Active Substance: INFLIXIMAB-AXXQ

REACTIONS (6)
  - Haemoptysis [Unknown]
  - Diarrhoea [Unknown]
  - Pain [Unknown]
  - Acne [Unknown]
  - Urticaria [Unknown]
  - Inappropriate schedule of product administration [Unknown]
